FAERS Safety Report 16911578 (Version 1)
Quarter: 2019Q4

REPORT INFORMATION
  Report Type: Spontaneous
  Country: US (occurrence: US)
  Receive Date: 20191013
  Receipt Date: 20191013
  Transmission Date: 20200122
  Serious: No
  Sender: FDA-Public Use
  Company Number: US-JNJFOC-20191014800

PATIENT

DRUGS (1)
  1. WOMENS ROGAINE UNSCENTED [Suspect]
     Active Substance: MINOXIDIL
     Indication: PRODUCT USED FOR UNKNOWN INDICATION
     Dosage: HALF CAPFUL, AT NIGHT.
     Route: 061

REACTIONS (5)
  - Periorbital swelling [Unknown]
  - Application site pain [Unknown]
  - Application site irritation [Not Recovered/Not Resolved]
  - Peripheral swelling [Unknown]
  - Epistaxis [Unknown]
